FAERS Safety Report 8446303-5 (Version None)
Quarter: 2012Q2

REPORT INFORMATION
  Report Type: 
  Country: None (occurrence: None)
  Receive Date: 20120618
  Receipt Date: 20120605
  Transmission Date: 20120825
  Serious: Yes (Hospitalization, Other)
  Sender: FDA-Public Use
  Company Number: US-BAYER-2012-036821

PATIENT
  Age: 57 Year
  Sex: Female
  Weight: 61.2 kg

DRUGS (22)
  1. ALBUTEROL [Concomitant]
     Dosage: 2.5 MG/3ML BY NEBULIZERQID AND EVERY 4 HOURS AS NEEDED
     Route: 055
     Dates: start: 20100112
  2. ALBUTEROL [Concomitant]
     Indication: WHEEZING
  3. ALBUTEROL [Concomitant]
     Dosage: INHALER 1-2 PUFFS EVERY 4-6 HOURS
     Route: 048
     Dates: start: 20110405
  4. HYDROCHLOROTHIAZIDE [Concomitant]
     Dosage: 25 MG, QD
     Route: 048
     Dates: start: 20100928
  5. ATIVAN [Concomitant]
     Dosage: 2 MG, TID
     Route: 048
     Dates: start: 20090807
  6. EFFEXOR XR [Concomitant]
  7. EFFEXOR XR [Concomitant]
     Dosage: 75 MG, QD
     Route: 048
     Dates: start: 20110726
  8. GLUCOPHAGE [Concomitant]
     Dosage: 1 G, BID
     Route: 048
     Dates: start: 20090825
  9. XARELTO [Interacting]
     Indication: ATRIAL FIBRILLATION
     Dosage: 20 MG, QD
     Route: 048
     Dates: start: 20120221, end: 20120407
  10. ATIVAN [Concomitant]
  11. MIRTAZAPINE [Concomitant]
  12. ULTRAM [Concomitant]
  13. ULTRAM [Concomitant]
     Route: 048
     Dates: start: 20090804
  14. ASPIRIN [Interacting]
     Dosage: 81 MG, QD
     Dates: start: 20120424
  15. ADVAIR DISKUS 100/50 [Concomitant]
     Route: 055
  16. ADVAIR DISKUS 100/50 [Concomitant]
     Route: 055
     Dates: start: 20110419
  17. CARDIZEM [Concomitant]
     Dosage: 120 MG, QD
     Route: 048
     Dates: start: 20091214
  18. DIGOXIN [Concomitant]
  19. XARELTO [Interacting]
     Indication: CEREBROVASCULAR ACCIDENT PROPHYLAXIS
  20. ASPIRIN [Suspect]
     Dosage: 325 MG, QD
     Route: 048
     Dates: start: 20120407, end: 20120420
  21. ENALAPRIL MALEATE [Concomitant]
  22. HYDROCHLOROTHIAZIDE [Concomitant]

REACTIONS (7)
  - CHEST PAIN [None]
  - CARDIAC TAMPONADE [None]
  - GASTROINTESTINAL HAEMORRHAGE [None]
  - PERICARDIAL HAEMORRHAGE [None]
  - DYSPNOEA [None]
  - ABDOMINAL PAIN [None]
  - HYPOTENSION [None]
